FAERS Safety Report 7354567-4 (Version None)
Quarter: 2011Q1

REPORT INFORMATION
  Report Type: 
  Country: None (occurrence: None)
  Receive Date: 20110316
  Receipt Date: 20110308
  Transmission Date: 20110831
  Serious: Yes (Other)
  Sender: FDA-Public Use
  Company Number: US-CEPHALON-2011001093

PATIENT
  Sex: Female

DRUGS (3)
  1. NUVIGIL [Suspect]
     Dates: start: 20100414, end: 20100415
  2. REBIF [Suspect]
  3. CYMBALTA [Concomitant]

REACTIONS (2)
  - DEPRESSED MOOD [None]
  - SELF-INJURIOUS IDEATION [None]
